FAERS Safety Report 4620456-9 (Version None)
Quarter: 2005Q1

REPORT INFORMATION
  Report Type: 
  Country: None (occurrence: None)
  Receive Date: 20050324
  Receipt Date: 20050311
  Transmission Date: 20050727
  Serious: Yes (Hospitalization)
  Sender: FDA-Public Use
  Company Number: HQWYE064611MAR05

PATIENT
  Age: 32 Year
  Sex: Female

DRUGS (1)
  1. TRIONETTA (LEVONORGESTREL/ETHINYL ESTRADIOL/INERT, TABLET) [Suspect]
     Indication: ORAL CONTRACEPTION
     Dosage: 1 TABLET 1X PER 1 DAY ORAL
     Route: 048
     Dates: end: 20041115

REACTIONS (3)
  - AXILLARY VEIN THROMBOSIS [None]
  - DEEP VEIN THROMBOSIS [None]
  - SUBCLAVIAN VEIN THROMBOSIS [None]
